FAERS Safety Report 19219786 (Version 2)
Quarter: 2021Q2

REPORT INFORMATION
  Report Type: Spontaneous
  Country: IT (occurrence: IT)
  Receive Date: 20210506
  Receipt Date: 20210519
  Transmission Date: 20210717
  Serious: Yes (Life-Threatening, Hospitalization, Other)
  Sender: FDA-Public Use
  Company Number: IT-AUROBINDO-AUR-APL-2021-018360

PATIENT
  Age: 19 Year
  Sex: Female

DRUGS (2)
  1. CEFIXIME. [Suspect]
     Active Substance: CEFIXIME
     Indication: PYREXIA
     Dosage: 400 MILLIGRAM, ONCE A DAY
     Route: 048
  2. CEFIXIME. [Suspect]
     Active Substance: CEFIXIME
     Indication: OROPHARYNGEAL PAIN

REACTIONS (4)
  - Oral disorder [Recovered/Resolved]
  - Skin lesion [Recovered/Resolved]
  - Thrombocytopenia [Recovered/Resolved]
  - Condition aggravated [Recovered/Resolved]
